FAERS Safety Report 7865099-9 (Version None)
Quarter: 2011Q4

REPORT INFORMATION
  Report Type: 
  Country: None (occurrence: None)
  Receive Date: 20111028
  Receipt Date: 20101013
  Transmission Date: 20120403
  Serious: No
  Sender: FDA-Public Use
  Company Number: US-GLAXOSMITHKLINE-A0886423A

PATIENT
  Sex: Female

DRUGS (6)
  1. BETAINE HYDROCHLORIDE [Concomitant]
     Route: 048
  2. HOMEOPATHIC DRUG [Concomitant]
  3. SINGULAIR [Concomitant]
  4. ALBUTEROL INHALER [Concomitant]
  5. NEBULIZER [Concomitant]
  6. ADVAIR DISKUS 100/50 [Suspect]
     Indication: ASTHMA
     Dosage: 1PUFF EVERY 3 DAYS
     Route: 055
     Dates: start: 20050301, end: 20091201

REACTIONS (6)
  - EMOTIONAL DISORDER [None]
  - PAIN IN EXTREMITY [None]
  - HOT FLUSH [None]
  - RHINITIS [None]
  - BONE PAIN [None]
  - MYALGIA [None]
